FAERS Safety Report 4919980-0 (Version None)
Quarter: 2006Q1

REPORT INFORMATION
  Report Type: 
  Country: None (occurrence: None)
  Receive Date: 20060216
  Receipt Date: 20060203
  Transmission Date: 20060701
  Serious: Yes (Death, Other)
  Sender: FDA-Public Use
  Company Number: 2005-01432

PATIENT
  Age: 47 Year
  Sex: Female
  Weight: 69 kg

DRUGS (8)
  1. VELCADE [Suspect]
     Indication: MULTIPLE MYELOMA
     Dosage: SEE IMAGE
     Route: 042
     Dates: start: 20050414, end: 20050516
  2. DECADRON [Suspect]
     Indication: MULTIPLE MYELOMA
  3. HUMALOG [Concomitant]
  4. ITRACONAZOLE [Concomitant]
  5. ACYCLOVIR [Concomitant]
  6. SULFAMETHOXAZOLE + TRIMETHOPRIM [Concomitant]
  7. DIOVAN [Concomitant]
  8. AMLODIPINE BESYLATE [Concomitant]

REACTIONS (45)
  - ASTHMA [None]
  - BACTERIA SPUTUM IDENTIFIED [None]
  - BLOOD BETA-D-GLUCAN INCREASED [None]
  - BLOOD PRESSURE DECREASED [None]
  - BRAIN ABSCESS [None]
  - C-REACTIVE PROTEIN INCREASED [None]
  - CAMPYLOBACTER INFECTION [None]
  - CARDIOMEGALY [None]
  - CELL MARKER INCREASED [None]
  - CEREBRAL ASPERGILLOSIS [None]
  - CEREBRAL INFARCTION [None]
  - DEPRESSED LEVEL OF CONSCIOUSNESS [None]
  - DIFFUSE ALVEOLAR DAMAGE [None]
  - DRUG ADMINISTRATION ERROR [None]
  - ECCHYMOSIS [None]
  - EMBOLISM [None]
  - ENTEROCOCCAL INFECTION [None]
  - HAEMORRHAGE INTRACRANIAL [None]
  - HAEMORRHAGIC CEREBRAL INFARCTION [None]
  - INFARCTION [None]
  - INTERSTITIAL LUNG DISEASE [None]
  - LUNG DISORDER [None]
  - LUNG INFECTION [None]
  - METAPLASIA [None]
  - MULTIPLE-DRUG RESISTANCE [None]
  - NEUTROPENIA [None]
  - OEDEMA [None]
  - PETECHIAE [None]
  - PLEURAL EFFUSION [None]
  - PNEUMOCYSTIS JIROVECI PNEUMONIA [None]
  - PNEUMONIA [None]
  - PNEUMONIA FUNGAL [None]
  - PSEUDOMONAL BACTERAEMIA [None]
  - PSEUDOMONAS INFECTION [None]
  - PULMONARY ALVEOLAR HAEMORRHAGE [None]
  - PULMONARY CONGESTION [None]
  - PULMONARY FIBROSIS [None]
  - PULMONARY OEDEMA [None]
  - RESPIRATORY FAILURE [None]
  - SECONDARY IMMUNODEFICIENCY [None]
  - SEPSIS [None]
  - STAPHYLOCOCCAL INFECTION [None]
  - SUBARACHNOID HAEMORRHAGE [None]
  - THERAPY NON-RESPONDER [None]
  - WHITE BLOOD CELL COUNT DECREASED [None]
